FAERS Safety Report 11241953 (Version 2)
Quarter: 2015Q4

REPORT INFORMATION
  Report Type: Spontaneous
  Country: JP (occurrence: JP)
  Receive Date: 20150706
  Receipt Date: 20151002
  Transmission Date: 20160304
  Serious: Yes (Other)
  Sender: FDA-Public Use
  Company Number: JP-MYLANLABS-2015M1021072

PATIENT

DRUGS (1)
  1. PREDNISOLONE. [Suspect]
     Active Substance: PREDNISOLONE
     Indication: ASTHMA
     Dosage: 2.5-5MG/DAY, 1 YEAR
     Route: 048

REACTIONS (4)
  - Cytomegalovirus infection [Unknown]
  - Stomatitis [Unknown]
  - Glossitis [Unknown]
  - Herpes simplex [Unknown]
